FAERS Safety Report 4954215-4 (Version None)
Quarter: 2006Q1

REPORT INFORMATION
  Report Type: 
  Country: None (occurrence: None)
  Receive Date: 20060327
  Receipt Date: 20050930
  Transmission Date: 20060701
  Serious: Yes (Hospitalization, Disabling)
  Sender: FDA-Public Use
  Company Number: US-MERCK-0510USA02186

PATIENT
  Age: 58 Year
  Sex: Male
  Weight: 91 kg

DRUGS (1)
  1. VIOXX [Suspect]
     Indication: ARTHRITIS
     Route: 048
     Dates: start: 20000317, end: 20021101

REACTIONS (6)
  - AORTIC ANEURYSM [None]
  - CHEST PAIN [None]
  - CORONARY ARTERY DISEASE [None]
  - INJURY [None]
  - PROCEDURAL PAIN [None]
  - SCAR [None]
